FAERS Safety Report 22055334 (Version 1)
Quarter: 2023Q1

REPORT INFORMATION
  Report Type: Spontaneous
  Country: US (occurrence: None)
  Receive Date: 20230301
  Receipt Date: 20230301
  Transmission Date: 20230417
  Serious: No
  Sender: FDA-Public Use
  Company Number: None

PATIENT
  Age: 62 Year
  Sex: Female
  Weight: 68.22 kg

DRUGS (8)
  1. WELIREG [Suspect]
     Active Substance: BELZUTIFAN
     Indication: Renal cancer
     Dosage: FREQUENCY : DAILY;?
     Route: 048
     Dates: start: 202211, end: 20230301
  2. AUGMENTIN [Concomitant]
  3. NORCO [Concomitant]
  4. LISINOPRIL [Concomitant]
  5. LORAZEPAM [Concomitant]
  6. METOPROLOL [Concomitant]
  7. NITROGLYCERIN [Concomitant]
  8. PANTOPRAZOLE [Concomitant]

REACTIONS (2)
  - Renal cancer [None]
  - Malignant neoplasm progression [None]
